FAERS Safety Report 14924574 (Version 1)
Quarter: 2018Q2

REPORT INFORMATION
  Report Type: Spontaneous
  Country: US (occurrence: US)
  Receive Date: 20180522
  Receipt Date: 20180522
  Transmission Date: 20180711
  Serious: No
  Sender: FDA-Public Use
  Company Number: US-LEXICON PHARMACEUTICALS, INC-18-1606-00584

PATIENT
  Age: 47 Year
  Sex: Male

DRUGS (7)
  1. TELOTRISTAT ETHYL [Suspect]
     Active Substance: TELOTRISTAT ETHYL
     Route: 048
     Dates: end: 201805
  2. NITROSTAT [Concomitant]
     Active Substance: NITROGLYCERIN
  3. ASPIRIN. [Concomitant]
     Active Substance: ASPIRIN
  4. ZOFRAN [Concomitant]
     Active Substance: ONDANSETRON HYDROCHLORIDE
  5. TELOTRISTAT ETHYL [Suspect]
     Active Substance: TELOTRISTAT ETHYL
     Indication: CARCINOID SYNDROME
     Route: 048
     Dates: start: 20170519
  6. ATENOLOL. [Concomitant]
     Active Substance: ATENOLOL
  7. DEPO-TESTOSTERONE [Concomitant]
     Active Substance: TESTOSTERONE CYPIONATE

REACTIONS (7)
  - Headache [Unknown]
  - Abdominal discomfort [Unknown]
  - Chest pain [Unknown]
  - Weight increased [Unknown]
  - Diarrhoea [Unknown]
  - Hyperhidrosis [Unknown]
  - Hypertension [Unknown]

NARRATIVE: CASE EVENT DATE: 201805
